FAERS Safety Report 5804151-6 (Version None)
Quarter: 2008Q3

REPORT INFORMATION
  Report Type: 
  Country: None (occurrence: None)
  Receive Date: 20080707
  Receipt Date: 20080623
  Transmission Date: 20090109
  Serious: Yes (Other)
  Sender: FDA-Public Use
  Company Number: 8030758

PATIENT
  Age: 62 Year
  Sex: Male
  Weight: 85 kg

DRUGS (11)
  1. KEPPRA [Suspect]
     Indication: CONVULSION
  2. FUROSEMIDE [Suspect]
     Indication: RENAL FAILURE
     Dosage: IV
     Route: 042
  3. PIRETANIDE [Concomitant]
  4. CORDAREX [Concomitant]
  5. ASPIRIN [Concomitant]
  6. BELOC ZOK [Concomitant]
  7. SPIRONOLACTONE [Concomitant]
  8. NEXIUM [Concomitant]
  9. RIVOTRIL [Concomitant]
  10. KALINOR [Concomitant]
  11. ACTRAPHANE [Concomitant]

REACTIONS (5)
  - ANTICONVULSANT DRUG LEVEL DECREASED [None]
  - APALLIC SYNDROME [None]
  - CONVULSION [None]
  - DRUG INTERACTION [None]
  - INJURY [None]
